FAERS Safety Report 19693451 (Version 2)
Quarter: 2021Q3

REPORT INFORMATION
  Report Type: Spontaneous
  Country: TR (occurrence: TR)
  Receive Date: 20210813
  Receipt Date: 20210908
  Transmission Date: 20211014
  Serious: Yes (Death, Life-Threatening, Hospitalization, Other)
  Sender: FDA-Public Use
  Company Number: TR-MACLEODS PHARMACEUTICALS US LTD-MAC2021032220

PATIENT

DRUGS (2)
  1. METFORMIN [Suspect]
     Active Substance: METFORMIN HYDROCHLORIDE
     Indication: TYPE 1 DIABETES MELLITUS
     Dosage: 500 MILLIGRAM, PILLS
     Route: 048
  2. INSULIN [Concomitant]
     Active Substance: INSULIN NOS
     Indication: TYPE 1 DIABETES MELLITUS

REACTIONS (27)
  - Lactic acidosis [Fatal]
  - Diabetic ketoacidosis [Unknown]
  - Dyspnoea [Unknown]
  - Prescription drug used without a prescription [Unknown]
  - Multiple organ dysfunction syndrome [Fatal]
  - Thrombosis [Unknown]
  - Metabolic acidosis [Unknown]
  - Tachycardia [Unknown]
  - Dehydration [Unknown]
  - Bradycardia [Unknown]
  - Thrombocytopenia [Fatal]
  - Rhabdomyolysis [Fatal]
  - Mitochondrial toxicity [Unknown]
  - Coagulopathy [Unknown]
  - Autonomic nervous system imbalance [Unknown]
  - Peripheral ischaemia [Unknown]
  - Intentional overdose [Fatal]
  - Hyperkalaemia [Fatal]
  - Hypertension [Unknown]
  - Sepsis [Fatal]
  - Cardiac arrest [Fatal]
  - Diabetic coma [Unknown]
  - Renal function test abnormal [Unknown]
  - Toxicity to various agents [Fatal]
  - Liver function test abnormal [Unknown]
  - Confusional state [Unknown]
  - Hypotension [Unknown]
